FAERS Safety Report 16658005 (Version 1)
Quarter: 2019Q3

REPORT INFORMATION
  Report Type: Report from Study
  Country: US (occurrence: US)
  Receive Date: 20190801
  Receipt Date: 20190801
  Transmission Date: 20191004
  Serious: Yes (Hospitalization)
  Sender: FDA-Public Use
  Company Number: PHEH2019US031686

PATIENT
  Sex: Male
  Weight: 74.38 kg

DRUGS (1)
  1. TREPROSTINIL. [Suspect]
     Active Substance: TREPROSTINIL
     Indication: PULMONARY ARTERIAL HYPERTENSION
     Dosage: 42NG/KG/MIN, CONTINUOUS
     Route: 042
     Dates: start: 20190530

REACTIONS (1)
  - Fluid retention [Unknown]
